FAERS Safety Report 7079781-7 (Version None)
Quarter: 2010Q4

REPORT INFORMATION
  Report Type: 
  Country: None (occurrence: None)
  Receive Date: 20101102
  Receipt Date: 20101021
  Transmission Date: 20110411
  Serious: Yes (Hospitalization)
  Sender: FDA-Public Use
  Company Number: JP-PFIZER INC-2010053489

PATIENT
  Age: 70 Year
  Sex: Male
  Weight: 51 kg

DRUGS (6)
  1. CAMPTOSAR [Suspect]
     Indication: COLORECTAL CANCER
     Dosage: 150 MG/M2, 229.5 MG
     Route: 041
     Dates: start: 20100202, end: 20100202
  2. FLUOROURACIL [Suspect]
     Indication: COLORECTAL CANCER
     Dosage: 400 MG/M2, 612 MG
     Route: 040
     Dates: start: 20100202, end: 20100202
  3. FLUOROURACIL [Suspect]
     Dosage: 2400 MG/M2, 3672 MG, D1-2
     Route: 041
     Dates: start: 20100202, end: 20100202
  4. CEFTAZIDIME [Suspect]
     Indication: PYREXIA
     Dosage: UNK
     Route: 041
     Dates: start: 20100208, end: 20100212
  5. CALCIUM LEVOFOLINATE [Concomitant]
     Indication: COLORECTAL CANCER
     Dosage: 200 MG/M2, 306 MG
     Route: 041
     Dates: start: 20100202, end: 20100202
  6. ERBITUX [Concomitant]
     Indication: COLORECTAL CANCER
     Dosage: 250 MG/M2, 382.5 MG
     Route: 041
     Dates: start: 20100202, end: 20100209

REACTIONS (10)
  - BLOOD CULTURE POSITIVE [None]
  - COLORECTAL CANCER [None]
  - DIARRHOEA [None]
  - ENTEROBACTER INFECTION [None]
  - HAEMOGLOBIN DECREASED [None]
  - INTESTINAL OBSTRUCTION [None]
  - LEUKOPENIA [None]
  - MALIGNANT NEOPLASM PROGRESSION [None]
  - NEUTROPENIA [None]
  - PSEUDOMEMBRANOUS COLITIS [None]
